FAERS Safety Report 9025171 (Version 2)
Quarter: 2013Q2

REPORT INFORMATION
  Report Type: Spontaneous
  Country: US (occurrence: US)
  Receive Date: 20130122
  Receipt Date: 20130409
  Transmission Date: 20140414
  Serious: No
  Sender: FDA-Public Use
  Company Number: US-009507513-1301USA009625

PATIENT
  Sex: Male

DRUGS (1)
  1. AZASITE [Suspect]
     Dosage: ONE DROP AT NIGHT FOR 3 WEEKS IN EACH EYE
     Route: 047
     Dates: start: 20130109

REACTIONS (5)
  - Drug ineffective [Unknown]
  - Accidental exposure to product [Unknown]
  - Incorrect drug administration duration [Unknown]
  - No adverse event [Unknown]
  - Product quality issue [Unknown]
